FAERS Safety Report 12396362 (Version 4)
Quarter: 2016Q3

REPORT INFORMATION
  Report Type: Spontaneous
  Country: US (occurrence: US)
  Receive Date: 20160524
  Receipt Date: 20160729
  Transmission Date: 20161109
  Serious: Yes (Hospitalization)
  Sender: FDA-Public Use
  Company Number: US-BAXTER-2016BAX022600

PATIENT
  Age: 78 Year
  Sex: Female

DRUGS (1)
  1. DIANEAL LOW CALCIUM PERITONEAL DIALYSIS SOLUTION WITH DEXTROSE [Suspect]
     Active Substance: CALCIUM CHLORIDE\DEXTROSE\MAGNESIUM CHLORIDE\SODIUM CHLORIDE\SODIUM LACTATE
     Indication: PERITONEAL DIALYSIS
     Route: 033

REACTIONS (8)
  - Peritonitis [Recovered/Resolved]
  - Red blood cell count decreased [Unknown]
  - Coagulopathy [Unknown]
  - Fluid overload [Recovered/Resolved]
  - Small intestinal haemorrhage [Unknown]
  - Haematochezia [Unknown]
  - Melaena [Unknown]
  - Application site laceration [Unknown]

NARRATIVE: CASE EVENT DATE: 201604
